FAERS Safety Report 7922588-6 (Version None)
Quarter: 2011Q4

REPORT INFORMATION
  Report Type: 
  Country: None (occurrence: None)
  Receive Date: 20111117
  Receipt Date: 20101109
  Transmission Date: 20120403
  Serious: No
  Sender: FDA-Public Use
  Company Number: US-ALLERGAN-1014520US

PATIENT
  Age: 62 Year
  Sex: Female

DRUGS (2)
  1. COMBIGAN [Suspect]
     Indication: GLAUCOMA
     Dosage: 1 GTT, BID
     Route: 047
  2. AZOPT [Concomitant]
     Indication: GLAUCOMA
     Dosage: UNK
     Route: 047

REACTIONS (2)
  - PHOTOPHOBIA [None]
  - ERYTHEMA [None]
